FAERS Safety Report 8002422-9 (Version None)
Quarter: 2011Q4

REPORT INFORMATION
  Report Type: 
  Country: None (occurrence: None)
  Receive Date: 20111222
  Receipt Date: 20110925
  Transmission Date: 20120403
  Serious: No
  Sender: FDA-Public Use
  Company Number: US-GLAXOSMITHKLINE-A0945913A

PATIENT
  Sex: Female

DRUGS (2)
  1. NICOTINE POLACRILEX [Suspect]
     Indication: SMOKING CESSATION THERAPY
     Dates: start: 20070101
  2. NICORETTE [Suspect]
     Indication: OFF LABEL USE
     Dosage: 2MG FIVE TIMES PER DAY
     Route: 002

REACTIONS (2)
  - THERAPEUTIC RESPONSE UNEXPECTED [None]
  - DRUG ADMINISTRATION ERROR [None]
